FAERS Safety Report 11516907 (Version 2)
Quarter: 2015Q4

REPORT INFORMATION
  Report Type: Report from Study
  Country: NL (occurrence: NL)
  Receive Date: 20150917
  Receipt Date: 20151015
  Transmission Date: 20160304
  Serious: Yes (Other)
  Sender: FDA-Public Use
  Company Number: NL-AMGEN-NLDSL2015095388

PATIENT
  Age: 80 Year
  Sex: Female

DRUGS (3)
  1. XGEVA [Suspect]
     Active Substance: DENOSUMAB
     Indication: PROPHYLAXIS
     Dosage: 1.70 ML (120 MG), Q4WK
     Route: 058
  2. XGEVA [Suspect]
     Active Substance: DENOSUMAB
     Dosage: UNK
     Route: 058
  3. CALCI CHEW D3 [Concomitant]
     Active Substance: CALCIUM CARBONATE\CHOLECALCIFEROL
     Dosage: 500MG/400 IE (90ST)

REACTIONS (5)
  - Neoplasm progression [Unknown]
  - Malaise [Unknown]
  - Weight decreased [Unknown]
  - Pain in extremity [Unknown]
  - Decreased appetite [Unknown]

NARRATIVE: CASE EVENT DATE: 20150914
